FAERS Safety Report 4304132-8 (Version None)
Quarter: 2004Q1

REPORT INFORMATION
  Report Type: 
  Country: None (occurrence: None)
  Receive Date: 20040224
  Receipt Date: 20040211
  Transmission Date: 20041129
  Serious: Yes (Hospitalization)
  Sender: FDA-Public Use
  Company Number: 02P-056-0202418-00

PATIENT
  Age: 15 Month
  Sex: Male
  Weight: 11 kg

DRUGS (6)
  1. NORVIR [Suspect]
  2. ZIDOVUDINE [Suspect]
     Indication: PROPHYLAXIS AGAINST HIV INFECTION
     Dosage: SEE IMAGE
     Route: 048
     Dates: start: 19980505, end: 19980505
  3. LAMIVUDINE [Suspect]
     Dosage: PER ORAL
     Route: 048
  4. SAQUINAVIR [Suspect]
     Dosage: PER ORAL
     Route: 048
  5. ZIDOVUDINE [Concomitant]
  6. LAMIVUDINE [Concomitant]

REACTIONS (14)
  - AGGRESSION [None]
  - ANAEMIA MACROCYTIC [None]
  - BLOOD CREATINE PHOSPHOKINASE INCREASED [None]
  - BLOOD LACTIC ACID INCREASED [None]
  - DEVELOPMENTAL COORDINATION DISORDER [None]
  - FEAR [None]
  - IMPULSIVE BEHAVIOUR [None]
  - LACTATE PYRUVATE RATIO INCREASED [None]
  - MATERNAL DRUGS AFFECTING FOETUS [None]
  - MENINGITIS VIRAL [None]
  - NEONATAL DISORDER [None]
  - NEUTROPENIA NEONATAL [None]
  - NIGHTMARE [None]
  - SOCIAL PROBLEM [None]
